FAERS Safety Report 6553982-6 (Version None)
Quarter: 2010Q1

REPORT INFORMATION
  Report Type: 
  Country: None (occurrence: None)
  Receive Date: 20100125
  Receipt Date: 20100111
  Transmission Date: 20100710
  Serious: Yes (Death, Hospitalization)
  Sender: FDA-Public Use
  Company Number: A-US2009-25280

PATIENT
  Age: 75 Year
  Sex: Female

DRUGS (7)
  1. TRACLEER [Suspect]
     Indication: PULMONARY ARTERIAL HYPERTENSION
     Dosage: 125 MG, BID, ORAL
     Route: 048
     Dates: start: 20030101, end: 20090801
  2. TREPROSTINIL (TREPROSTINIL) [Concomitant]
  3. ALDACTONE [Concomitant]
  4. RIFAXIMIN (RIFAXIMIN) [Concomitant]
  5. PEPCID [Concomitant]
  6. COMBIVENT (IPRATROPIUM BROMIDE, SALBUTAMOL) [Concomitant]
  7. TRAMADOL HCL [Concomitant]

REACTIONS (5)
  - GASTROINTESTINAL HAEMORRHAGE [None]
  - HEPATIC CIRRHOSIS [None]
  - SPLENOMEGALY [None]
  - THROMBOCYTOPENIA [None]
  - VARICES OESOPHAGEAL [None]
